FAERS Safety Report 14882613 (Version 2)
Quarter: 2018Q2

REPORT INFORMATION
  Report Type: Report from Study
  Country: US (occurrence: US)
  Receive Date: 20180511
  Receipt Date: 20180614
  Transmission Date: 20180711
  Serious: Yes (Hospitalization, Other)
  Sender: FDA-Public Use
  Company Number: US-JNJFOC-20180513214

PATIENT
  Sex: Male

DRUGS (8)
  1. IMBRUVICA [Concomitant]
     Active Substance: IBRUTINIB
     Indication: NON-HODGKIN^S LYMPHOMA
     Route: 048
     Dates: start: 20151214
  2. HUMALOG [Concomitant]
     Active Substance: INSULIN LISPRO
  3. VITAMIN D [Concomitant]
     Active Substance: CHOLECALCIFEROL
  4. IMBRUVICA [Suspect]
     Active Substance: IBRUTINIB
     Indication: NON-HODGKIN^S LYMPHOMA
     Route: 048
     Dates: start: 20180405
  5. IMBRUVICA [Suspect]
     Active Substance: IBRUTINIB
     Indication: NON-HODGKIN^S LYMPHOMA
     Route: 048
     Dates: start: 20180406
  6. METOPROLOL. [Concomitant]
     Active Substance: METOPROLOL
  7. LANTUS [Concomitant]
     Active Substance: INSULIN GLARGINE
  8. ALLOPURINOL. [Concomitant]
     Active Substance: ALLOPURINOL

REACTIONS (5)
  - Staphylococcal infection [Unknown]
  - Post procedural infection [Unknown]
  - White blood cell count decreased [Recovering/Resolving]
  - Neoplasm malignant [Unknown]
  - Platelet count decreased [Recovering/Resolving]
